FAERS Safety Report 24543224 (Version 2)
Quarter: 2024Q4

REPORT INFORMATION
  Report Type: Spontaneous
  Country: US (occurrence: US)
  Receive Date: 20241024
  Receipt Date: 20241028
  Transmission Date: 20250115
  Serious: Yes (Hospitalization, Other)
  Sender: RANBAXY
  Company Number: US-SUN PHARMACEUTICAL INDUSTRIES LTD-2024R1-474813

PATIENT
  Age: 10 Year
  Sex: Male

DRUGS (2)
  1. VERAPAMIL [Suspect]
     Active Substance: VERAPAMIL HYDROCHLORIDE
     Indication: Reversible cerebral vasoconstriction syndrome
     Dosage: UNK
     Route: 013
  2. ASPIRIN [Suspect]
     Active Substance: ASPIRIN
     Indication: Reversible cerebral vasoconstriction syndrome
     Dosage: UNK
     Route: 065

REACTIONS (1)
  - Seizure [Recovered/Resolved]
